FAERS Safety Report 9013560 (Version 1)
Quarter: 2013Q1

REPORT INFORMATION
  Report Type: Spontaneous
  Country: US (occurrence: None)
  Receive Date: 20130107
  Receipt Date: 20130107
  Transmission Date: 20140127
  Serious: Yes (Hospitalization)
  Sender: FDA-Public Use
  Company Number: None

PATIENT
  Age: 62 Year
  Sex: Male
  Weight: 70.2 kg

DRUGS (2)
  1. WARFARIN [Suspect]
     Indication: INTRACARDIAC THROMBUS
     Dosage: IN THE EVENING
     Route: 048
     Dates: start: 20120125, end: 20120130
  2. ENOXAPARIN [Suspect]
     Indication: INTRACARDIAC THROMBUS
     Route: 058
     Dates: start: 20120111, end: 20120127

REACTIONS (2)
  - Muscle haemorrhage [None]
  - Anaemia [None]
